FAERS Safety Report 7221277-3 (Version None)
Quarter: 2011Q1

REPORT INFORMATION
  Report Type: 
  Country: None (occurrence: None)
  Receive Date: 20110112
  Receipt Date: 20110103
  Transmission Date: 20110831
  Serious: Yes (Other)
  Sender: FDA-Public Use
  Company Number: PHBS2007US21812

PATIENT
  Sex: Female
  Weight: 90.703 kg

DRUGS (2)
  1. EXJADE [Suspect]
     Dosage: 500 MG, UNK
  2. EXJADE [Suspect]
     Dosage: 1500 MG DAILY

REACTIONS (15)
  - CONSTIPATION [None]
  - WEIGHT DECREASED [None]
  - ABDOMINAL DISCOMFORT [None]
  - DIARRHOEA [None]
  - SERUM FERRITIN INCREASED [None]
  - IRRITABLE BOWEL SYNDROME [None]
  - DYSPEPSIA [None]
  - AGEUSIA [None]
  - BEDRIDDEN [None]
  - HYPERTENSION [None]
  - NAUSEA [None]
  - FATIGUE [None]
  - APHAGIA [None]
  - DECREASED APPETITE [None]
  - PALPITATIONS [None]
